FAERS Safety Report 8659080 (Version 4)
Quarter: 2013Q1

REPORT INFORMATION
  Report Type: Report from Study
  Country: US (occurrence: US)
  Receive Date: 20120710
  Receipt Date: 20130122
  Transmission Date: 20140127
  Serious: Yes (Hospitalization, Congenital Anomaly)
  Sender: FDA-Public Use
  Company Number: US-ROCHE-1045783

PATIENT
  Age: 0 Year
  Sex: Male

DRUGS (1)
  1. OMALIZUMAB [Suspect]
     Indication: ASTHMA
     Dosage: LAST DOSE PRIOR TO SAE 13/OCT/2011
     Route: 064
     Dates: start: 20091125

REACTIONS (4)
  - Umbilical hernia [Recovered/Resolved]
  - Premature baby [Unknown]
  - Maternal exposure timing unspecified [Unknown]
  - Otitis media acute [Unknown]
